FAERS Safety Report 26194739 (Version 1)
Quarter: 2025Q4

REPORT INFORMATION
  Report Type: Spontaneous
  Country: US (occurrence: US)
  Receive Date: 20251224
  Receipt Date: 20251224
  Transmission Date: 20260117
  Serious: Yes (Disabling)
  Sender: BAYER HEALTHCARE PHARMACEUTICALS INC.
  Company Number: US-BAYER-2025A164833

PATIENT
  Age: 41 Year
  Sex: Female

DRUGS (2)
  1. MIRENA [Suspect]
     Active Substance: LEVONORGESTREL
     Dosage: 20?G/DAY
     Route: 015
     Dates: start: 20170522, end: 20220318
  2. ASPIRIN [Suspect]
     Active Substance: ASPIRIN
     Route: 048

REACTIONS (8)
  - Infertility female [Not Recovered/Not Resolved]
  - Endometrial thinning [Not Recovered/Not Resolved]
  - Menstrual disorder [Not Recovered/Not Resolved]
  - Hypomenorrhoea [Not Recovered/Not Resolved]
  - Failed in vitro fertilisation [None]
  - Failed in vitro fertilisation [None]
  - Failed in vitro fertilisation [None]
  - Uterine scar [None]

NARRATIVE: CASE EVENT DATE: 20220318
